FAERS Safety Report 13994733 (Version 2)
Quarter: 2018Q1

REPORT INFORMATION
  Report Type: Report from Study
  Country: CA (occurrence: CA)
  Receive Date: 20170921
  Receipt Date: 20180222
  Transmission Date: 20180508
  Serious: Yes (Other)
  Sender: FDA-Public Use
  Company Number: CA-BRISTOL-MYERS SQUIBB COMPANY-BMS-2017-042984

PATIENT
  Age: 48 Year
  Sex: Female

DRUGS (1)
  1. ABATACEPT [Suspect]
     Active Substance: ABATACEPT
     Indication: RHEUMATOID ARTHRITIS
     Dosage: 1000 MG, Q3WK
     Route: 042
     Dates: start: 20170209

REACTIONS (8)
  - Arthropathy [Recovering/Resolving]
  - Peripheral swelling [Unknown]
  - Back pain [Unknown]
  - Off label use [Unknown]
  - Musculoskeletal pain [Unknown]
  - Pain [Unknown]
  - Headache [Unknown]
  - Swelling [Unknown]

NARRATIVE: CASE EVENT DATE: 20170209
